FAERS Safety Report 10423558 (Version 2)
Quarter: 2014Q3

REPORT INFORMATION
  Report Type: Spontaneous
  Country: US (occurrence: US)
  Receive Date: 20140902
  Receipt Date: 20140917
  Transmission Date: 20150326
  Serious: Yes (Hospitalization)
  Sender: FDA-Public Use
  Company Number: US-JNJFOC-20140826869

PATIENT
  Sex: Female
  Weight: 112.04 kg

DRUGS (33)
  1. LIDOCAINE CREAM [Concomitant]
     Indication: PRURITUS
     Dosage: APPLY TWICE WHEN NECESSARY??1 TUBE 30 DAYS
     Route: 065
     Dates: start: 20140425
  2. LIALDA [Concomitant]
     Active Substance: MESALAMINE
     Indication: CROHN^S DISEASE
     Dosage: 1.2 GM
     Route: 065
     Dates: start: 20140324
  3. PREDNISONE. [Concomitant]
     Active Substance: PREDNISONE
     Indication: CROHN^S DISEASE
     Dosage: REDUCING DOSE
     Route: 065
     Dates: start: 20140319
  4. TIGAN [Concomitant]
     Active Substance: TRIMETHOBENZAMIDE HYDROCHLORIDE
     Indication: CROHN^S DISEASE
     Dosage: #90 FOR 30 DAYS
     Route: 065
     Dates: start: 20140407
  5. SYNTHROID [Concomitant]
     Active Substance: LEVOTHYROXINE SODIUM
     Dosage: 125 MCG
     Route: 048
  6. LASIX [Concomitant]
     Active Substance: FUROSEMIDE
     Route: 065
  7. PROMETHAZINE [Concomitant]
     Active Substance: PROMETHAZINE\PROMETHAZINE HYDROCHLORIDE
     Indication: CROHN^S DISEASE
     Dosage: AS NECESSARY (#120, 30 DAYS)
     Route: 065
     Dates: start: 20140806
  8. HYDROCORTISONE W/PARACETAMOL [Concomitant]
     Indication: CROHN^S DISEASE
     Dosage: 10-325 MG 1 TABLET EVERY 6 HOURS AS NECESSARY
     Route: 065
     Dates: start: 20140806
  9. LINZESS [Concomitant]
     Active Substance: LINACLOTIDE
     Dosage: 145 MCG
     Route: 065
     Dates: start: 20140811
  10. FUROSEMIDE. [Concomitant]
     Active Substance: FUROSEMIDE
     Route: 048
  11. PHENERGAN [Concomitant]
     Active Substance: PROMETHAZINE HYDROCHLORIDE
     Route: 065
  12. FAMOTIDINE. [Concomitant]
     Active Substance: FAMOTIDINE
     Indication: GASTROOESOPHAGEAL REFLUX DISEASE
     Dosage: #30 IN 30 DAYS
     Route: 065
     Dates: start: 20130826
  13. LORTAB [Concomitant]
     Active Substance: ACETAMINOPHEN\HYDROCODONE BITARTRATE
     Route: 065
  14. CLOBETASOL PROPIONATE. [Concomitant]
     Active Substance: CLOBETASOL PROPIONATE
     Dosage: EXTERNAL
     Route: 065
  15. FOLIC ACID. [Concomitant]
     Active Substance: FOLIC ACID
     Route: 048
  16. REMICADE [Suspect]
     Active Substance: INFLIXIMAB
     Indication: CROHN^S DISEASE
     Route: 042
     Dates: start: 20140716
  17. ZOFRAN [Concomitant]
     Active Substance: ONDANSETRON HYDROCHLORIDE
     Indication: NAUSEA
     Dosage: 2 TABLET DISPERSE EVERY 4 HOURS WHEN NECESSARY
     Route: 065
     Dates: start: 20120702
  18. NEXIUM [Concomitant]
     Active Substance: ESOMEPRAZOLE MAGNESIUM
     Dosage: DR ( DELAYED-RELEASE ) #60, 30DAYS
     Route: 065
     Dates: start: 20140811
  19. SYMBICORT [Concomitant]
     Active Substance: BUDESONIDE\FORMOTEROL FUMARATE DIHYDRATE
     Dosage: 160-4.5 MCG/ACT AEROSOL 2 PUFFS INHALATION
     Route: 065
  20. CLORAZEPATE DIPOTASSIUM. [Concomitant]
     Active Substance: CLORAZEPATE DIPOTASSIUM
     Route: 048
  21. REMICADE [Suspect]
     Active Substance: INFLIXIMAB
     Indication: CROHN^S DISEASE
     Route: 042
     Dates: start: 20140910
  22. LIDOCAINE CREAM [Concomitant]
     Indication: RECTAL HAEMORRHAGE
     Dosage: APPLY TWICE WHEN NECESSARY??1 TUBE 30 DAYS
     Route: 065
     Dates: start: 20140425
  23. VITAMIN B COMPLEX [Concomitant]
     Active Substance: CYANOCOBALAMIN\DEXPANTHENOL\NIACINAMIDE\PYRIDOXINE HYDROCHLORIDE\RIBOFLAVIN 5^-PHOSPHATE SODIUM\THIAMINE HYDROCHLORIDE\VITAMIN B COMPLEX
     Route: 065
  24. B-COMPLEX PLUS FOLIC ACID [Concomitant]
     Dosage: 15-100-4-500 MG
     Route: 048
  25. TRANSDERM PATCH [Concomitant]
     Indication: NAUSEA
     Route: 065
     Dates: start: 20130619
  26. BUDESONIDE. [Concomitant]
     Active Substance: BUDESONIDE
     Route: 065
     Dates: start: 20140709
  27. ANALPRAM-HC [Concomitant]
     Indication: CROHN^S DISEASE
     Dosage: 1-2.5%, 30 TUBES 10 DAYS
     Route: 065
     Dates: start: 20140516
  28. LOSARTAN POTASSIUM. [Concomitant]
     Active Substance: LOSARTAN POTASSIUM
     Route: 048
  29. REMICADE [Suspect]
     Active Substance: INFLIXIMAB
     Indication: CROHN^S DISEASE
     Route: 042
     Dates: start: 20140507
  30. REMICADE [Suspect]
     Active Substance: INFLIXIMAB
     Indication: CROHN^S DISEASE
     Route: 042
     Dates: start: 20140806
  31. ZOFRAN [Concomitant]
     Active Substance: ONDANSETRON HYDROCHLORIDE
     Indication: NAUSEA
     Dosage: #120 IN 30 DAYS
     Route: 065
     Dates: start: 20131030
  32. ENALAPRIL [Concomitant]
     Active Substance: ENALAPRIL
     Route: 065
  33. POTASSIUM BICARBONATE. [Concomitant]
     Active Substance: POTASSIUM BICARBONATE
     Route: 048

REACTIONS (3)
  - Drug ineffective [Unknown]
  - Hernia repair [Recovering/Resolving]
  - Clostridium difficile infection [Recovering/Resolving]

NARRATIVE: CASE EVENT DATE: 2014
